FAERS Safety Report 9045437 (Version 1)
Quarter: 2013Q1

REPORT INFORMATION
  Report Type: Report from Study
  Country: US (occurrence: US)
  Receive Date: 20130131
  Receipt Date: 20130131
  Transmission Date: 20140127
  Serious: No
  Sender: FDA-Public Use
  Company Number: US-ABBOTT-12P-163-1004415-00

PATIENT
  Age: 56 Year
  Sex: Female

DRUGS (15)
  1. HUMIRA [Suspect]
     Indication: PSORIASIS
     Dosage: 80MG LOADING DOSE
     Dates: start: 20121026, end: 20121026
  2. HUMIRA [Suspect]
  3. CLARITIN [Concomitant]
     Indication: HYPERSENSITIVITY
  4. CELEBREX [Concomitant]
     Indication: ARTHRITIS
  5. KLOR-CON [Concomitant]
     Indication: PRODUCT USED FOR UNKNOWN INDICATION
  6. FOLIC ACID [Concomitant]
     Indication: PRODUCT USED FOR UNKNOWN INDICATION
  7. VITAMIN D [Concomitant]
     Indication: PRODUCT USED FOR UNKNOWN INDICATION
  8. IRON [Concomitant]
     Indication: PRODUCT USED FOR UNKNOWN INDICATION
  9. PRILOSEC [Concomitant]
     Indication: GASTROOESOPHAGEAL REFLUX DISEASE
  10. FLEXERIL [Concomitant]
     Indication: PRODUCT USED FOR UNKNOWN INDICATION
  11. LOSARTAN [Concomitant]
     Indication: BLOOD PRESSURE
  12. CRESTOR [Concomitant]
     Indication: BLOOD CHOLESTEROL
     Dosage: 3 DAYS A WEEK
  13. NORCO [Concomitant]
     Indication: PAIN
     Dosage: EVERY 4 TO 6 HOURS
  14. SINGULAIR [Concomitant]
     Indication: ASTHMA
  15. FLONASE [Concomitant]
     Indication: PRODUCT USED FOR UNKNOWN INDICATION

REACTIONS (1)
  - Injection site pain [Recovered/Resolved]
